FAERS Safety Report 7572891-7 (Version None)
Quarter: 2011Q2

REPORT INFORMATION
  Report Type: 
  Country: None (occurrence: None)
  Receive Date: 20110627
  Receipt Date: 20110620
  Transmission Date: 20111010
  Serious: Yes (Death)
  Sender: FDA-Public Use
  Company Number: CH-ELI_LILLY_AND_COMPANY-CH200704002867

PATIENT
  Age: 20 Year
  Sex: Male

DRUGS (4)
  1. LORAZEPAM [Concomitant]
     Indication: DEPRESSION
     Dosage: 2 MG, OTHER
     Route: 048
     Dates: start: 20070130
  2. METHADONE HCL [Interacting]
     Indication: ABNORMAL BEHAVIOUR
     Dosage: 20 MG, DAILY (1/D)
     Route: 048
     Dates: start: 20070302
  3. ZYPREXA [Suspect]
     Indication: PERSONALITY DISORDER
     Dosage: 5 MG, 4/D
     Route: 048
     Dates: start: 20070130
  4. REMERON [Interacting]
     Indication: DEPRESSION
     Dosage: 30 MG, DAILY (1/D)
     Route: 048
     Dates: start: 20070130

REACTIONS (6)
  - SUDDEN CARDIAC DEATH [None]
  - DEPRESSED LEVEL OF CONSCIOUSNESS [None]
  - POTENTIATING DRUG INTERACTION [None]
  - TOXICITY TO VARIOUS AGENTS [None]
  - PULMONARY OEDEMA [None]
  - RESPIRATORY DEPRESSION [None]
